FAERS Safety Report 9257740 (Version 1)
Quarter: 2013Q2

REPORT INFORMATION
  Report Type: Spontaneous
  Country: FR (occurrence: None)
  Receive Date: 20130422
  Receipt Date: 20130422
  Transmission Date: 20140414
  Serious: Yes (Hospitalization, Other)
  Sender: FDA-Public Use
  Company Number: AXC-2013-000155

PATIENT
  Age: 57 Year
  Sex: Female

DRUGS (4)
  1. DELURSAN (URSODEOXYCHOLIC ACID) TABLET [Suspect]
     Indication: LIVER DISORDER
     Route: 048
     Dates: start: 20120717, end: 20120830
  2. DELURSAN (URSODEOXYCHOLIC ACID) TABLET [Suspect]
     Indication: JAUNDICE
     Route: 048
     Dates: start: 20120717, end: 20120830
  3. LANSOPRAZOLE (LANSOPRAZOLE) [Suspect]
     Indication: LIVER DISORDER
     Route: 048
     Dates: start: 20120717, end: 20120830
  4. LANSOPRAZOLE (LANSOPRAZOLE) [Suspect]
     Indication: JAUNDICE
     Route: 048
     Dates: start: 20120717, end: 20120830

REACTIONS (9)
  - Rash maculo-papular [None]
  - Pruritus generalised [None]
  - Burning sensation [None]
  - Eczema [None]
  - Eosinophilia [None]
  - Leukocytosis [None]
  - Hypoalbuminaemia [None]
  - Oedema peripheral [None]
  - Drug reaction with eosinophilia and systemic symptoms [None]
